FAERS Safety Report 9643070 (Version 1)
Quarter: 2013Q4

REPORT INFORMATION
  Report Type: Spontaneous
  Country: CH (occurrence: None)
  Receive Date: 20131022
  Receipt Date: 20131022
  Transmission Date: 20140711
  Serious: Yes (Hospitalization)
  Sender: FDA-Public Use
  Company Number: B0931367A

PATIENT
  Age: 76 Year
  Sex: Male

DRUGS (1)
  1. FLUTICASONE PROPIONATE [Suspect]
     Indication: CHRONIC OBSTRUCTIVE PULMONARY DISEASE
     Route: 055

REACTIONS (11)
  - Adrenal insufficiency [None]
  - Decreased appetite [None]
  - Weight decreased [None]
  - Amnesia [None]
  - Asthenia [None]
  - Abasia [None]
  - Abdominal tenderness [None]
  - Blood potassium decreased [None]
  - Blood glucose decreased [None]
  - Anaemia [None]
  - Blood corticotrophin decreased [None]
